FAERS Safety Report 6371884-5 (Version None)
Quarter: 2009Q3

REPORT INFORMATION
  Report Type: 
  Country: None (occurrence: None)
  Receive Date: 20090923
  Receipt Date: 20090914
  Transmission Date: 20100115
  Serious: Yes (Hospitalization, Other)
  Sender: FDA-Public Use
  Company Number: PHHY2009JP39941

PATIENT
  Age: 30 Year
  Sex: Male

DRUGS (3)
  1. CYCLOSPORINE [Suspect]
     Indication: HEART TRANSPLANT
     Dosage: 150-175 MG/DAY
  2. MYCOPHENOLATE MOFETIL [Suspect]
     Indication: HEART TRANSPLANT
     Dosage: 1500 MG/DAY
  3. INFLIXIMAB [Suspect]
     Indication: CROHN'S DISEASE
     Dosage: 5 MG/KG
     Route: 042
     Dates: start: 20030201

REACTIONS (12)
  - ABDOMINAL PAIN [None]
  - ANAL ABSCESS [None]
  - ANAL FISTULA EXCISION [None]
  - CROHN'S DISEASE [None]
  - HEART TRANSPLANT REJECTION [None]
  - ILEAL OPERATION [None]
  - ILEAL PERFORATION [None]
  - INTESTINAL ULCER [None]
  - LAPAROTOMY [None]
  - PERITONITIS [None]
  - SMALL INTESTINAL OBSTRUCTION [None]
  - SMALL INTESTINAL STENOSIS [None]
